FAERS Safety Report 7548869-6 (Version None)
Quarter: 2011Q2

REPORT INFORMATION
  Report Type: 
  Country: None (occurrence: None)
  Receive Date: 20110615
  Receipt Date: 20110607
  Transmission Date: 20111010
  Serious: Yes (Other)
  Sender: FDA-Public Use
  Company Number: BR-US-EMD SERONO, INC.-7064197

PATIENT
  Sex: Female

DRUGS (6)
  1. REBIF [Suspect]
     Indication: RELAPSING-REMITTING MULTIPLE SCLEROSIS
     Dates: start: 20071105
  2. OMEPRAZOLE [Concomitant]
  3. ACETAMINOPHEN [Concomitant]
  4. INSULINE NPH [Concomitant]
  5. GLIMEPIRIDE [Concomitant]
  6. HUMECTOL [Concomitant]

REACTIONS (3)
  - DIABETES MELLITUS [None]
  - URINARY TRACT INFECTION [None]
  - URINE COLOUR ABNORMAL [None]
